FAERS Safety Report 14233796 (Version 5)
Quarter: 2018Q2

REPORT INFORMATION
  Report Type: Report from Study
  Country: CA (occurrence: CA)
  Receive Date: 20171128
  Receipt Date: 20180515
  Transmission Date: 20180711
  Serious: Yes (Hospitalization, Other)
  Sender: FDA-Public Use
  Company Number: CA-BRISTOL-MYERS SQUIBB COMPANY-BMS-2017-104090

PATIENT
  Age: 60 Year
  Sex: Male

DRUGS (1)
  1. ABATACEPT [Suspect]
     Active Substance: ABATACEPT
     Indication: RHEUMATOID ARTHRITIS
     Dosage: 125 MG, QWK
     Route: 058
     Dates: start: 20171102

REACTIONS (16)
  - Dyspnoea [Unknown]
  - Specific gravity urine abnormal [Unknown]
  - Hot flush [Not Recovered/Not Resolved]
  - Disturbance in attention [Unknown]
  - Decreased appetite [Unknown]
  - Weight decreased [Unknown]
  - Wound [Recovering/Resolving]
  - Diarrhoea [Unknown]
  - Erythema [Unknown]
  - Nasopharyngitis [Recovering/Resolving]
  - Arthralgia [Not Recovered/Not Resolved]
  - Dehydration [Unknown]
  - Hypokalaemia [Unknown]
  - Feeling hot [Unknown]
  - Skin abrasion [Unknown]
  - Fatigue [Not Recovered/Not Resolved]

NARRATIVE: CASE EVENT DATE: 20171112
